FAERS Safety Report 5919790-1 (Version None)
Quarter: 2008Q4

REPORT INFORMATION
  Report Type: 
  Country: None (occurrence: None)
  Receive Date: 20081015
  Receipt Date: 20081003
  Transmission Date: 20090506
  Serious: Yes (Other)
  Sender: FDA-Public Use
  Company Number: US-PFIZER INC-2008075397

PATIENT
  Sex: Female
  Weight: 59 kg

DRUGS (16)
  1. AROMASIN [Suspect]
     Indication: BREAST CANCER
     Route: 048
     Dates: start: 20080501, end: 20080806
  2. CALCIUM W/COLECALCIFEROL [Concomitant]
     Indication: OSTEOPENIA
     Route: 048
  3. ATENOLOL [Concomitant]
  4. SIMVASTATIN [Concomitant]
  5. VITAMINS [Concomitant]
  6. ACTONEL [Concomitant]
     Indication: OSTEOPENIA
  7. PROTONIX [Concomitant]
     Route: 048
  8. ISOSORBIDE [Concomitant]
     Route: 048
  9. FOLIC ACID [Concomitant]
     Route: 048
  10. ASPIRIN [Concomitant]
     Route: 048
  11. ALTACE [Concomitant]
     Route: 048
  12. AMBIEN [Concomitant]
     Route: 048
  13. TENORMIN [Concomitant]
     Route: 048
  14. LASIX [Concomitant]
     Route: 048
  15. NITROGLYCERIN [Concomitant]
     Route: 060
  16. ZOCOR [Concomitant]
     Route: 048

REACTIONS (7)
  - BLOOD PRESSURE INCREASED [None]
  - CHEST PAIN [None]
  - FLUSHING [None]
  - HEADACHE [None]
  - HYPOAESTHESIA [None]
  - MUSCULOSKELETAL STIFFNESS [None]
  - PALPITATIONS [None]
